FAERS Safety Report 23914950 (Version 1)
Quarter: 2024Q2

REPORT INFORMATION
  Report Type: Spontaneous
  Country: US (occurrence: US)
  Receive Date: 20240529
  Receipt Date: 20240529
  Transmission Date: 20240716
  Serious: No
  Sender: FDA-Public Use
  Company Number: US-PERRIGO-24US001429

PATIENT
  Sex: Female
  Weight: 77.098 kg

DRUGS (1)
  1. MINOXIDIL [Suspect]
     Active Substance: MINOXIDIL
     Indication: Alopecia
     Dosage: LESS THAN 1/2 CAPFUL, TWICE A WEEK
     Route: 061
     Dates: start: 202401, end: 20240206

REACTIONS (3)
  - Limb discomfort [Unknown]
  - Hot flush [Unknown]
  - Off label use [Unknown]

NARRATIVE: CASE EVENT DATE: 20240101
